FAERS Safety Report 9322527 (Version 3)
Quarter: 2013Q3

REPORT INFORMATION
  Report Type: Spontaneous
  Country: JP (occurrence: JP)
  Receive Date: 20130531
  Receipt Date: 20130723
  Transmission Date: 20140515
  Serious: Yes (Life-Threatening, Other)
  Sender: FDA-Public Use
  Company Number: JP-009507513-1305JPN015627

PATIENT
  Age: 88 Year
  Sex: Female
  Weight: 44 kg

DRUGS (10)
  1. JANUVIA TABLETS 50MG [Suspect]
     Indication: DIABETES MELLITUS
     Dosage: 50 MG, QD
     Route: 048
     Dates: start: 20120202, end: 20130425
  2. SEPAMIT-R CAPSULES 10 [Concomitant]
     Indication: HYPERTENSION
     Dosage: 1 DF, BID
     Route: 048
     Dates: start: 20021120
  3. MECOBALAMIN [Concomitant]
     Indication: DIABETES MELLITUS
     Dosage: 500 MICROGRAM, TID
     Route: 048
     Dates: start: 20021120
  4. VOGLIBOSE [Concomitant]
     Indication: DIABETES MELLITUS
     Dosage: 1 DF, TID
     Route: 048
     Dates: start: 20080703
  5. PRAVASTATIN SODIUM [Concomitant]
     Indication: DYSLIPIDAEMIA
     Dosage: 10 MG, UNK
     Route: 048
     Dates: start: 20041005
  6. GLICLAZIDE [Concomitant]
     Indication: DIABETES MELLITUS
     Dosage: 20 MG, UNK
     Route: 048
     Dates: start: 20090130
  7. KIPRES [Concomitant]
     Indication: ASTHMA
     Dosage: 10 MG, QD
     Route: 048
     Dates: start: 20121107
  8. MEPTIN [Concomitant]
     Indication: ASTHMA
     Dosage: UNK
     Route: 055
     Dates: start: 20121019
  9. ROHYPNOL [Concomitant]
     Indication: INSOMNIA
     Dosage: AT 1MG/ SLEEP LOSS
     Route: 048
     Dates: start: 20041005
  10. PULMICORT [Concomitant]
     Indication: ASTHMA
     Dosage: 400 MICROGRAM, QD
     Route: 055
     Dates: start: 20121007

REACTIONS (2)
  - Pancreatic carcinoma [Not Recovered/Not Resolved]
  - Hepatic cancer metastatic [Not Recovered/Not Resolved]
